FAERS Safety Report 17404745 (Version 2)
Quarter: 2021Q1

REPORT INFORMATION
  Report Type: Spontaneous
  Country: US (occurrence: US)
  Receive Date: 20200211
  Receipt Date: 20210122
  Transmission Date: 20210419
  Serious: Yes (Other)
  Sender: FDA-Public Use
  Company Number: US-PURDUE-USA-2019-0148510

PATIENT
  Age: 47 Year
  Sex: Female

DRUGS (9)
  1. HYDROMORPHONE TABLET (RHODES) [Suspect]
     Active Substance: HYDROMORPHONE
     Indication: PRODUCT USED FOR UNKNOWN INDICATION
     Dosage: UNK
     Route: 048
  2. BUPRENORPHINE TRANSDERMAL PATCH (SIMILAR TO NDA 21?306) [Suspect]
     Active Substance: BUPRENORPHINE
     Indication: PRODUCT USED FOR UNKNOWN INDICATION
     Dosage: UNK
     Route: 062
     Dates: start: 201708
  3. OXYCONTIN [Suspect]
     Active Substance: OXYCODONE HYDROCHLORIDE
     Indication: PAIN
     Dosage: 40 MG, TID
     Route: 048
     Dates: start: 200610, end: 2015
  4. DILAUDID [Suspect]
     Active Substance: HYDROMORPHONE HYDROCHLORIDE
     Indication: PRODUCT USED FOR UNKNOWN INDICATION
     Dosage: UNK
     Route: 048
     Dates: start: 200610, end: 2015
  5. OXYCODONE/ ACETAMINOPHEN TABLETS [Suspect]
     Active Substance: ACETAMINOPHEN\OXYCODONE HYDROCHLORIDE
     Indication: PAIN
     Dosage: UNK
     Route: 048
  6. OXYIR [Suspect]
     Active Substance: OXYCODONE HYDROCHLORIDE
     Indication: PRODUCT USED FOR UNKNOWN INDICATION
     Dosage: UNK
     Route: 048
  7. BUTRANS [Suspect]
     Active Substance: BUPRENORPHINE
     Indication: PRODUCT USED FOR UNKNOWN INDICATION
     Dosage: 15 MCG/HR, WEEKLY
     Route: 062
     Dates: start: 201708, end: 20190916
  8. BUTRANS [Suspect]
     Active Substance: BUPRENORPHINE
     Dosage: 20 MCG/HR, WEEKLY
     Route: 062
     Dates: start: 20190916
  9. PERCOCET                           /00446701/ [Suspect]
     Active Substance: ACETAMINOPHEN\OXYCODONE HYDROCHLORIDE\OXYCODONE TEREPHTHALATE
     Indication: PRODUCT USED FOR UNKNOWN INDICATION
     Dosage: UNK
     Route: 065
     Dates: start: 200610, end: 2015

REACTIONS (39)
  - Cardiac disorder [Unknown]
  - Fracture [Unknown]
  - Application site burn [Not Recovered/Not Resolved]
  - Blister [Not Recovered/Not Resolved]
  - Hyperaesthesia [Unknown]
  - Drug dependence [Unknown]
  - Inappropriate schedule of product administration [Unknown]
  - Application site irritation [Unknown]
  - Application site discharge [Unknown]
  - Anger [Unknown]
  - Tooth loss [Unknown]
  - Application site inflammation [Not Recovered/Not Resolved]
  - Application site haematoma [Unknown]
  - Fall [Unknown]
  - Heart rate increased [Unknown]
  - Application site erythema [Not Recovered/Not Resolved]
  - Application site exfoliation [Unknown]
  - Sexual dysfunction [Unknown]
  - Personality change [Unknown]
  - Dry mouth [Unknown]
  - Immunosuppression [Unknown]
  - Pruritus [Not Recovered/Not Resolved]
  - Product adhesion issue [Unknown]
  - Dental caries [Unknown]
  - Apathy [Unknown]
  - Arrhythmia [Unknown]
  - Memory impairment [Unknown]
  - Narcotic bowel syndrome [Unknown]
  - Wrong technique in product usage process [Unknown]
  - Application site dryness [Not Recovered/Not Resolved]
  - Hormone level abnormal [Unknown]
  - Constipation [Unknown]
  - Skin exfoliation [Not Recovered/Not Resolved]
  - Depression [Unknown]
  - Insomnia [Unknown]
  - Insomnia [Unknown]
  - Application site pruritus [Unknown]
  - Breathing-related sleep disorder [Unknown]
  - Illness [Unknown]

NARRATIVE: CASE EVENT DATE: 2006
